FAERS Safety Report 7393413-X (Version None)
Quarter: 2011Q2

REPORT INFORMATION
  Report Type: 
  Country: None (occurrence: None)
  Receive Date: 20110405
  Receipt Date: 20110322
  Transmission Date: 20111010
  Serious: Yes (Hospitalization)
  Sender: FDA-Public Use
  Company Number: NL-RANBAXY-2011RR-43418

PATIENT
  Sex: Female

DRUGS (3)
  1. NAPROXEN [Suspect]
     Indication: TENDONITIS
     Dosage: 1 DF, UNK
     Dates: start: 20110119
  2. DICLOFENAC [Suspect]
     Indication: TENDONITIS
     Dosage: 150 MG, TID
     Dates: start: 20110112, end: 20110119
  3. IBUPROFEN [Suspect]
     Indication: TENDONITIS
     Dosage: 1 DF, UNK
     Dates: start: 20110218

REACTIONS (1)
  - OPTIC NEURITIS [None]
